FAERS Safety Report 6087208-7 (Version None)
Quarter: 2009Q1

REPORT INFORMATION
  Report Type: 
  Country: None (occurrence: None)
  Receive Date: 20090223
  Receipt Date: 20090211
  Transmission Date: 20090719
  Serious: Yes (Death)
  Sender: FDA-Public Use
  Company Number: FR-MERCK-0902FRA00041

PATIENT
  Age: 84 Year
  Sex: Female

DRUGS (8)
  1. HYZAAR [Suspect]
     Indication: HYPERTENSION
     Route: 048
     Dates: end: 20080227
  2. KETOPROFEN [Suspect]
     Indication: SCIATICA
     Route: 030
     Dates: start: 20080224, end: 20080227
  3. MORPHINE [Concomitant]
     Indication: SCIATICA
     Route: 041
     Dates: start: 20080201
  4. MORPHINE SULFATE [Concomitant]
     Indication: SCIATICA
     Route: 048
     Dates: start: 20080201
  5. BISOPROLOL FUMARATE [Concomitant]
     Route: 065
  6. ESOMEPRAZOLE MAGNESIUM [Concomitant]
     Route: 065
  7. POLYETHYLENE GLYCOL 4000 [Concomitant]
     Route: 065
  8. NITROGLYCERIN [Concomitant]
     Route: 065

REACTIONS (1)
  - RENAL FAILURE ACUTE [None]
